FAERS Safety Report 11416546 (Version 1)
Quarter: 2015Q3

REPORT INFORMATION
  Report Type: Spontaneous
  Country: BR (occurrence: BR)
  Receive Date: 20150825
  Receipt Date: 20150825
  Transmission Date: 20151125
  Serious: Yes (Hospitalization)
  Sender: FDA-Public Use
  Company Number: BR-PFIZER INC-2015278639

PATIENT
  Age: 79 Year
  Sex: Female
  Weight: 63 kg

DRUGS (4)
  1. LYRICA [Suspect]
     Active Substance: PREGABALIN
     Indication: PAIN
     Dosage: 75 MG DAILY
     Route: 048
     Dates: start: 201505, end: 20150525
  2. AMLODIPINE BESILATE [Concomitant]
     Active Substance: AMLODIPINE BESYLATE
     Indication: HYPERTENSION
     Dosage: 1 UNK, UNK
     Dates: start: 2012
  3. LOSARTAN. [Concomitant]
     Active Substance: LOSARTAN
     Indication: HYPERTENSION
     Dosage: 50 MG, UNK
     Dates: start: 2012
  4. RIVOTRIL [Concomitant]
     Active Substance: CLONAZEPAM
     Indication: LABYRINTHITIS
     Dosage: 0.5 OF UNSPECIFIED UNIT (1 TABLET) DAILY
     Dates: start: 2010

REACTIONS (1)
  - Spinal disorder [Unknown]
